FAERS Safety Report 6293671-9 (Version None)
Quarter: 2009Q3

REPORT INFORMATION
  Report Type: 
  Country: None (occurrence: None)
  Receive Date: 20090803
  Receipt Date: 20090721
  Transmission Date: 20100115
  Serious: Yes (Other)
  Sender: FDA-Public Use
  Company Number: US-TYCO HEALTHCARE/MALLINCKRODT-T200901240

PATIENT
  Sex: Female
  Weight: 72.562 kg

DRUGS (14)
  1. OPTIMARK [Suspect]
     Indication: ANGIOGRAM
     Dosage: UNK
     Dates: start: 20050129, end: 20050129
  2. OPTIMARK [Suspect]
     Indication: VENOGRAM
  3. GADOLINIUM [Suspect]
     Dosage: UNK
     Dates: start: 20010101
  4. EXCEDRIN                           /00214201/ [Suspect]
     Indication: HEADACHE
     Dosage: 2 TABS Q 4 HRS PRN
  5. ACETYLSALICYLIC ACID WITH CAFFEINE [Suspect]
  6. NORVASC [Concomitant]
     Dosage: 10 MG, BID
  7. SENSIPAR [Concomitant]
     Dosage: 60 MG, BID
  8. ENALAPRIL MALEATE [Concomitant]
     Dosage: 40 MG, BID
  9. RENAGEL                            /01459901/ [Concomitant]
     Dosage: 800 MG, W/ SNACKS AND 2 W/ MEALS
  10. NEPHRO [Concomitant]
     Dosage: 1 CAN BID
  11. RENAL [Concomitant]
     Dosage: 1 QD
  12. EPOGEN [Concomitant]
     Dosage: 3 X WEEK
  13. FERRLECIT                          /00345601/ [Concomitant]
     Dosage: 1 X WEEK
  14. MULTIVITAMIN                       /01229101/ [Concomitant]
     Dosage: OD

REACTIONS (18)
  - ABDOMINAL DISCOMFORT [None]
  - ANAEMIA [None]
  - BRONCHITIS [None]
  - CALCINOSIS [None]
  - CARDIAC FAILURE CONGESTIVE [None]
  - DIARRHOEA [None]
  - GASTRITIS [None]
  - HYPERPARATHYROIDISM [None]
  - MIGRAINE [None]
  - NEPHROGENIC SYSTEMIC FIBROSIS [None]
  - OFF LABEL USE [None]
  - ORAL DISORDER [None]
  - RENAL TRANSPLANT [None]
  - SINUSITIS [None]
  - TRANSPLANT REJECTION [None]
  - UTERINE ABSCESS [None]
  - UTERINE HAEMORRHAGE [None]
  - UTERINE LEIOMYOMA [None]
